FAERS Safety Report 14392260 (Version 8)
Quarter: 2020Q1

REPORT INFORMATION
  Report Type: Report from Study
  Country: CA (occurrence: CA)
  Receive Date: 20180116
  Receipt Date: 20200203
  Transmission Date: 20200409
  Serious: Yes (Hospitalization, Other)
  Sender: FDA-Public Use
  Company Number: CA-GLAXOSMITHKLINE-CA2018GSK006058

PATIENT
  Sex: Male

DRUGS (8)
  1. VENTOLIN [Suspect]
     Active Substance: ALBUTEROL SULFATE
     Indication: PRODUCT USED FOR UNKNOWN INDICATION
     Dosage: UNK
  2. MEPOLIZUMAB [Suspect]
     Active Substance: MEPOLIZUMAB
     Dosage: 100 MG, Z, (MONTHLY)
     Route: 042
  3. PREDNISONE. [Suspect]
     Active Substance: PREDNISONE
     Dosage: UNK (TAPERED BACK TO 10)
  4. MEPOLIZUMAB [Suspect]
     Active Substance: MEPOLIZUMAB
     Indication: ASTHMA
     Dosage: 100 MG, Z (MONTHLY)
     Route: 042
     Dates: start: 20180119
  5. PREDNISONE. [Suspect]
     Active Substance: PREDNISONE
     Indication: ASTHMA
     Dosage: 50 MG, QD (10-15 MG)
  6. SPIRIVA [Suspect]
     Active Substance: TIOTROPIUM BROMIDE MONOHYDRATE
     Indication: ASTHMA
     Dosage: 2.5 MCG/MG
  7. ADVAIR HFA [Suspect]
     Active Substance: FLUTICASONE PROPIONATE\SALMETEROL XINAFOATE
     Indication: PRODUCT USED FOR UNKNOWN INDICATION
     Dosage: 500 MCG/MG, BID
  8. MEPOLIZUMAB [Suspect]
     Active Substance: MEPOLIZUMAB
     Dosage: 100 MG, Z (MONTHLY)
     Route: 042

REACTIONS (29)
  - Epigastric discomfort [Unknown]
  - Condition aggravated [Unknown]
  - Hepatic steatosis [Unknown]
  - Streptococcal infection [Unknown]
  - Neuropathy peripheral [Unknown]
  - Blood count abnormal [Unknown]
  - Chills [Unknown]
  - Pneumonia [Unknown]
  - Respiratory disorder [Unknown]
  - Weight increased [Unknown]
  - Dyspnoea [Unknown]
  - Gout [Unknown]
  - Intervertebral disc degeneration [Unknown]
  - Transaminases increased [Unknown]
  - Cyst [Unknown]
  - Therapeutic response decreased [Unknown]
  - Obstructive airways disorder [Unknown]
  - Nausea [Unknown]
  - Arthralgia [Unknown]
  - Cough [Unknown]
  - Perforation [Unknown]
  - Upper respiratory tract infection [Unknown]
  - Asthma [Unknown]
  - Vomiting [Unknown]
  - Gastrooesophageal reflux disease [Unknown]
  - Constipation [Unknown]
  - Oedema peripheral [Unknown]
  - Pyrexia [Unknown]
  - Tachycardia [Unknown]
